FAERS Safety Report 9438066 (Version 2)
Quarter: 2013Q4

REPORT INFORMATION
  Report Type: Spontaneous
  Country: GB (occurrence: GB)
  Receive Date: 20130802
  Receipt Date: 20131218
  Transmission Date: 20140711
  Serious: Yes (Hospitalization, Other)
  Sender: FDA-Public Use
  Company Number: GB-EISAI INC-E7389-04067-SPO-GB

PATIENT
  Age: 60 Year
  Sex: Female
  Weight: 101.8 kg

DRUGS (14)
  1. HALAVEN [Suspect]
     Indication: BREAST CANCER METASTATIC
     Dosage: 2.42 MG
     Route: 041
     Dates: start: 20130710, end: 20130710
  2. IBANDRONIC ACID [Concomitant]
     Indication: METASTASES TO BONE
     Route: 048
  3. FRAGMIN [Concomitant]
     Indication: PULMONARY EMBOLISM
     Route: 058
  4. FUROSEMIDE [Concomitant]
     Route: 048
  5. BISOPROLOL [Concomitant]
     Route: 048
  6. METFORMIN [Concomitant]
     Indication: DIABETES MELLITUS
     Route: 048
  7. ADCAL D3 [Concomitant]
     Dosage: 2 TABLET
     Route: 048
  8. OMEPRAZOLE [Concomitant]
     Indication: PROPHYLAXIS
     Route: 048
  9. SIMVASTATIN [Concomitant]
     Route: 048
  10. ACITRETIN [Concomitant]
     Indication: PSORIASIS
     Route: 048
  11. OXYCODONE MR [Concomitant]
     Indication: PAIN
     Route: 048
  12. GABAPENTIN [Concomitant]
     Indication: PAIN
     Route: 048
  13. INSUMAN 50 [Concomitant]
     Indication: DIABETES MELLITUS
     Dosage: 48 U A.M. 28 U P.M.
     Route: 058
  14. DEXAMETHASONE [Concomitant]
     Route: 048

REACTIONS (4)
  - Renal failure acute [Recovered/Resolved]
  - Hypotension [Recovered/Resolved]
  - Osteosclerosis [Unknown]
  - Lung disorder [Unknown]
